FAERS Safety Report 15330666 (Version 2)
Quarter: 2018Q3

REPORT INFORMATION
  Report Type: Spontaneous
  Country: US (occurrence: US)
  Receive Date: 20180829
  Receipt Date: 20180829
  Transmission Date: 20181010
  Serious: No
  Sender: FDA-Public Use
  Company Number: US-BAYER-2018-156542

PATIENT
  Age: 58 Year
  Sex: Female

DRUGS (2)
  1. FINACEA [Suspect]
     Active Substance: AZELAIC ACID
     Indication: ROSACEA
     Dosage: 1 DF, QD
     Dates: start: 20180605, end: 20180816
  2. FINACEA [Suspect]
     Active Substance: AZELAIC ACID
     Indication: ROSACEA
     Dosage: UNK
     Dates: start: 201806, end: 201808

REACTIONS (4)
  - Product physical consistency issue [None]
  - Poor quality drug administered [None]
  - Product quality issue [None]
  - Product quality issue [None]

NARRATIVE: CASE EVENT DATE: 201806
